FAERS Safety Report 9785824 (Version 1)
Quarter: 2013Q4

REPORT INFORMATION
  Report Type: Spontaneous
  Country: PL (occurrence: None)
  Receive Date: 20131224
  Receipt Date: 20131224
  Transmission Date: 20140711
  Serious: Yes (Life-Threatening, Disabling)
  Sender: FDA-Public Use
  Company Number: PD-194

PATIENT
  Age: 16 Year
  Sex: Male
  Weight: 65 kg

DRUGS (1)
  1. PSEUDOEPHEDRINE [Suspect]
     Indication: SUBSTANCE USE
     Route: 048

REACTIONS (3)
  - Dystonia [None]
  - Neuroleptic malignant syndrome [None]
  - Psychotic disorder [None]
